FAERS Safety Report 10340571 (Version 1)
Quarter: 2014Q3

REPORT INFORMATION
  Report Type: Spontaneous
  Country: FR (occurrence: FR)
  Receive Date: 20140724
  Receipt Date: 20140724
  Transmission Date: 20150326
  Serious: Yes (Hospitalization, Other)
  Sender: FDA-Public Use
  Company Number: FR-GLAXOSMITHKLINE-B1015234A

PATIENT
  Age: 72 Year
  Sex: Female

DRUGS (5)
  1. PEGASYS [Concomitant]
     Active Substance: PEGINTERFERON ALFA-2A
     Indication: HEPATITIS C
     Dates: start: 20130219
  2. TELAPREVIR [Concomitant]
     Active Substance: TELAPREVIR
     Indication: HEPATITIS C
     Dates: start: 20130409, end: 20130709
  3. COPEGUS [Concomitant]
     Active Substance: RIBAVIRIN
     Indication: HEPATITIS C
     Dates: start: 20130219
  4. PLATELET TRANSFUSION [Concomitant]
     Dates: start: 20130508
  5. REVOLADE [Suspect]
     Active Substance: ELTROMBOPAG
     Indication: THROMBOCYTOPENIA
     Route: 048
     Dates: start: 20130508, end: 20131209

REACTIONS (8)
  - Off label use [Unknown]
  - Melanoderma [Recovered/Resolved]
  - Weight decreased [Recovered/Resolved]
  - Sleep disorder [Recovering/Resolving]
  - Nausea [Unknown]
  - Memory impairment [Recovering/Resolving]
  - Jaundice [Unknown]
  - Fatigue [Recovering/Resolving]

NARRATIVE: CASE EVENT DATE: 20130819
